FAERS Safety Report 9269143 (Version 4)
Quarter: 2013Q3

REPORT INFORMATION
  Report Type: Spontaneous
  Country: US (occurrence: US)
  Receive Date: 20130503
  Receipt Date: 20130710
  Transmission Date: 20140515
  Serious: No
  Sender: FDA-Public Use
  Company Number: US-009507513-1305USA000654

PATIENT
  Age: 29 Year
  Sex: Female
  Weight: 64.4 kg

DRUGS (2)
  1. NEXPLANON [Suspect]
     Dosage: ONE ROD PER THREE YEARS
     Route: 059
     Dates: start: 20130426, end: 20130426
  2. NEXPLANON [Suspect]
     Dosage: NEW ONE, ONE ROD PER THREE YEARS
     Route: 059
     Dates: start: 20130426

REACTIONS (4)
  - Device difficult to use [Unknown]
  - Device difficult to use [Unknown]
  - Device deployment issue [Unknown]
  - Product quality issue [Unknown]
